FAERS Safety Report 22320007 (Version 3)
Quarter: 2024Q3

REPORT INFORMATION
  Report Type: Report from Study
  Country: DE (occurrence: DE)
  Receive Date: 20230515
  Receipt Date: 20240823
  Transmission Date: 20241017
  Serious: Yes (Hospitalization)
  Sender: ROCHE
  Company Number: DE-ROCHE-2782804

PATIENT
  Age: 58 Year
  Sex: Female

DRUGS (4)
  1. OCRELIZUMAB [Suspect]
     Active Substance: OCRELIZUMAB
     Indication: Relapsing-remitting multiple sclerosis
     Dosage: 1ST INITIAL DOSE?600MG, 155 DAYS, 600MG, 182 DAYS, 191 DAYS
     Route: 042
     Dates: start: 20210223
  2. OCRELIZUMAB [Suspect]
     Active Substance: OCRELIZUMAB
     Dosage: 2ND INITIAL DOSE
     Route: 042
     Dates: start: 20210309
  3. OCRELIZUMAB [Suspect]
     Active Substance: OCRELIZUMAB
     Route: 042
     Dates: start: 20210914
  4. LEVOTHYROXINE [Concomitant]
     Active Substance: LEVOTHYROXINE\LEVOTHYROXINE SODIUM

REACTIONS (8)
  - Fatigue [Recovered/Resolved]
  - Electric shock sensation [Recovered/Resolved]
  - Endometrial hyperplasia [Recovered/Resolved]
  - Uterine cancer [Recovered/Resolved]
  - Diarrhoea [Recovered/Resolved]
  - COVID-19 [Recovered/Resolved]
  - Disturbance in attention [Recovered/Resolved]
  - Fatigue [Recovered/Resolved]

NARRATIVE: CASE EVENT DATE: 20210223
